FAERS Safety Report 6883021-9 (Version None)
Quarter: 2010Q3

REPORT INFORMATION
  Report Type: 
  Country: None (occurrence: None)
  Receive Date: 20100729
  Receipt Date: 20100715
  Transmission Date: 20110219
  Serious: Yes (Hospitalization)
  Sender: FDA-Public Use
  Company Number: AU-ROCHE-717341

PATIENT
  Sex: Female
  Weight: 70.1 kg

DRUGS (9)
  1. PEGINTERFERON ALFA-2A [Suspect]
     Indication: HEPATITIS C
     Dosage: FORM: LO
     Route: 058
     Dates: start: 20090501, end: 20091016
  2. PEGINTERFERON ALFA-2A [Suspect]
     Route: 058
  3. RIBAVIRIN [Suspect]
     Indication: HEPATITIS C
     Dosage: FORM: TA
     Route: 048
     Dates: start: 20090501, end: 20091210
  4. RIBAVIRIN [Suspect]
     Route: 048
  5. BLINDED BI 201335 NA [Suspect]
     Indication: HEPATITIS C
     Dosage: FORM: KA
     Route: 048
     Dates: start: 20090501
  6. ZOLOFT [Concomitant]
     Indication: DEPRESSION
     Dates: start: 20090201, end: 20091125
  7. IMPLANON [Concomitant]
     Indication: CONTRACEPTION
     Dates: start: 20081201
  8. SERETIDE [Concomitant]
     Indication: ASTHMA
     Dates: start: 20030101
  9. VENTOLIN [Concomitant]
     Indication: ASTHMA
     Dates: start: 19810101

REACTIONS (5)
  - BRANCHIAL CYST [None]
  - DEPRESSION [None]
  - HEADACHE [None]
  - MIGRAINE [None]
  - PHOTOPHOBIA [None]
